FAERS Safety Report 22324491 (Version 1)
Quarter: 2023Q2

REPORT INFORMATION
  Report Type: Spontaneous
  Country: CN (occurrence: CN)
  Receive Date: 20230516
  Receipt Date: 20230516
  Transmission Date: 20230722
  Serious: Yes (Hospitalization, Other)
  Sender: FDA-Public Use
  Company Number: CN-OTSUKA-2023_010853

PATIENT
  Age: 8 Year
  Sex: Male

DRUGS (3)
  1. ABILIFY [Suspect]
     Active Substance: ARIPIPRAZOLE
     Indication: Autism spectrum disorder
     Dosage: 10 ML, QD (ONCE AT NIGHT)
     Route: 048
     Dates: start: 20230412, end: 20230412
  2. ABILIFY [Suspect]
     Active Substance: ARIPIPRAZOLE
     Dosage: 5 ML, QD (ONCE AT NIGHT)
     Route: 048
     Dates: start: 20230413, end: 20230413
  3. ATOMOXETINE HYDROCHLORIDE [Concomitant]
     Active Substance: ATOMOXETINE HYDROCHLORIDE
     Indication: Autism spectrum disorder
     Dosage: 10 MG, QD
     Route: 048
     Dates: start: 20230412

REACTIONS (7)
  - Toxicity to various agents [Recovered/Resolved]
  - Hallucination, auditory [Recovered/Resolved]
  - Hallucination [Recovered/Resolved]
  - Tremor [Recovered/Resolved]
  - Salivary hypersecretion [Recovered/Resolved]
  - Chest pain [Recovered/Resolved]
  - Product use in unapproved indication [Unknown]

NARRATIVE: CASE EVENT DATE: 20230412
